FAERS Safety Report 8770695 (Version 1)
Quarter: 2012Q4

REPORT INFORMATION
  Report Type: 
  Country: US (occurrence: US)
  Receive Date: 20120906
  Receipt Date: 20120906
  Transmission Date: 20130627
  Serious: No
  Sender: FDA-Public Use
  Company Number: US-B.I. PHARMACEUTICALS,INC./RIDGEFIELD-2012-BP-20796BP

PATIENT
  Age: 89 None
  Sex: Male
  Weight: 54 kg

DRUGS (7)
  1. SPIRIVA [Suspect]
     Indication: DYSPNOEA
     Dosage: 18 mcg
     Route: 055
     Dates: start: 2008
  2. SPIRIVA [Suspect]
     Indication: ASBESTOSIS
  3. STOMACH PILL [Concomitant]
     Indication: ABDOMINAL DISCOMFORT
     Route: 048
  4. FISH OIL [Concomitant]
     Indication: ROUTINE HEALTH MAINTENANCE
     Route: 048
  5. SOMETHING FOR MY EYE [Concomitant]
     Indication: EYE DISORDER
     Route: 048
     Dates: start: 2005
  6. VITAMINS [Concomitant]
     Indication: SUPPLEMENTATION THERAPY
     Route: 048
     Dates: start: 2009
  7. PLAVIX [Concomitant]
     Indication: TRANSIENT ISCHAEMIC ATTACK
     Route: 048
     Dates: start: 2008

REACTIONS (4)
  - Throat irritation [Recovered/Resolved]
  - Visual acuity reduced [Not Recovered/Not Resolved]
  - Overdose [Recovered/Resolved]
  - Product quality issue [Recovered/Resolved]
